FAERS Safety Report 8077575-7 (Version None)
Quarter: 2012Q1

REPORT INFORMATION
  Report Type: 
  Country: None (occurrence: None)
  Receive Date: 20120127
  Receipt Date: 20120117
  Transmission Date: 20120608
  Serious: Yes (Other)
  Sender: FDA-Public Use
  Company Number: CHPA2012US001946

PATIENT
  Sex: Male

DRUGS (2)
  1. EXCEDRIN EXTRA STRENGTH TABLETS [Suspect]
     Dosage: ^SOMTIMES MORE THAN 2^, QD
     Route: 048
  2. EXCEDRIN EXTRA STRENGTH TABLETS [Suspect]
     Indication: ANTICOAGULANT THERAPY
     Dosage: 2 DF, QD
     Route: 048
     Dates: end: 20120101

REACTIONS (5)
  - HYPOTENSION [None]
  - HALLUCINATION, VISUAL [None]
  - MALAISE [None]
  - OFF LABEL USE [None]
  - CARDIAC DISORDER [None]
